FAERS Safety Report 4519141-3 (Version None)
Quarter: 2004Q4

REPORT INFORMATION
  Report Type: 
  Country: None (occurrence: None)
  Receive Date: 20041206
  Receipt Date: 20041129
  Transmission Date: 20050328
  Serious: Yes (Other)
  Sender: FDA-Public Use
  Company Number: US-JNJFOC-20041106744

PATIENT
  Age: 54 Year
  Sex: Female

DRUGS (3)
  1. DURAGESIC [Suspect]
     Dosage: THREE 100 UG/HR PATCHES (PATIENT CHANGES ONE 100 UG/HR PATCH EACH DAY).
     Route: 062
     Dates: start: 19940101
  2. OXYCONTIN [Concomitant]
     Indication: THERAPEUTIC RESPONSE DECREASED
     Route: 049
     Dates: start: 19940101
  3. SEROQUEL [Concomitant]
     Indication: POST-TRAUMATIC STRESS DISORDER
     Route: 049
     Dates: start: 19940101

REACTIONS (3)
  - CHOLELITHIASIS [None]
  - CONSTIPATION [None]
  - CONVULSION [None]
